FAERS Safety Report 5641658-9 (Version None)
Quarter: 2008Q1

REPORT INFORMATION
  Report Type: 
  Country: None (occurrence: None)
  Receive Date: 20080225
  Receipt Date: 20080214
  Transmission Date: 20080703
  Serious: Yes (Hospitalization)
  Sender: FDA-Public Use
  Company Number: 2008-00532

PATIENT
  Age: 60 Year
  Sex: Male
  Weight: 72.7 kg

DRUGS (1)
  1. VELCADE [Suspect]
     Indication: MULTIPLE MYELOMA

REACTIONS (3)
  - EMOTIONAL DISTRESS [None]
  - LACTIC ACIDOSIS [None]
  - TACHYPNOEA [None]
